FAERS Safety Report 23916399 (Version 2)
Quarter: 2025Q2

REPORT INFORMATION
  Report Type: Spontaneous
  Country: US (occurrence: US)
  Receive Date: 20240529
  Receipt Date: 20250620
  Transmission Date: 20250716
  Serious: Yes (Hospitalization)
  Sender: CSL BEHRING
  Company Number: US-BEH-2024172249

PATIENT
  Age: 63 Year
  Sex: Female

DRUGS (4)
  1. HIZENTRA [Suspect]
     Active Substance: HUMAN IMMUNOGLOBULIN G
     Indication: Hypogammaglobulinaemia
     Dosage: 10 G, QW
     Route: 058
     Dates: start: 202210
  2. HIZENTRA [Suspect]
     Active Substance: HUMAN IMMUNOGLOBULIN G
     Indication: IgG deficiency
     Dosage: 10 G, QW
     Route: 058
     Dates: start: 202211
  3. HIZENTRA [Suspect]
     Active Substance: HUMAN IMMUNOGLOBULIN G
     Route: 065
     Dates: start: 202504
  4. AMOXICILLIN [Concomitant]
     Active Substance: AMOXICILLIN

REACTIONS (10)
  - Pulmonary mass [Unknown]
  - Urinary tract infection [Unknown]
  - Cystitis [Unknown]
  - Skin infection [Unknown]
  - Rash [Unknown]
  - Sinusitis [Unknown]
  - Cellulitis [Unknown]
  - Weight increased [Unknown]
  - Haemoptysis [Unknown]
  - Chest pain [Unknown]
